FAERS Safety Report 14838412 (Version 1)
Quarter: 2018Q2

REPORT INFORMATION
  Report Type: Report from Study
  Country: US (occurrence: US)
  Receive Date: 20180502
  Receipt Date: 20180502
  Transmission Date: 20180711
  Serious: Yes (Hospitalization)
  Sender: FDA-Public Use
  Company Number: US-ACTELION-A-NJ2018-171441

PATIENT
  Age: 67 Year
  Sex: Male

DRUGS (12)
  1. DIGOXIN. [Concomitant]
     Active Substance: DIGOXIN
  2. SPIRONOLACTON [Concomitant]
     Active Substance: SPIRONOLACTONE
  3. TRACLEER [Suspect]
     Active Substance: BOSENTAN
     Indication: PULMONARY HYPERTENSION
     Dosage: 125 MG, BID
     Route: 048
     Dates: start: 20180201
  4. SILDENAFIL. [Concomitant]
     Active Substance: SILDENAFIL
  5. METHOTREXATE. [Concomitant]
     Active Substance: METHOTREXATE
  6. FLONASE [Concomitant]
     Active Substance: FLUTICASONE PROPIONATE
  7. FOLIC ACID. [Concomitant]
     Active Substance: FOLIC ACID
  8. PREDNISONE. [Concomitant]
     Active Substance: PREDNISONE
  9. SPIRIVA [Concomitant]
     Active Substance: TIOTROPIUM BROMIDE MONOHYDRATE
  10. TORSEMIDE. [Concomitant]
     Active Substance: TORSEMIDE
  11. VITAMIN A [Concomitant]
     Active Substance: VITAMIN A
  12. DEXILANT [Concomitant]
     Active Substance: DEXLANSOPRAZOLE

REACTIONS (1)
  - Blister infected [Recovered/Resolved]

NARRATIVE: CASE EVENT DATE: 20180409
